FAERS Safety Report 15415614 (Version 2)
Quarter: 2018Q4

REPORT INFORMATION
  Report Type: Report from Study
  Country: US (occurrence: US)
  Receive Date: 20180922
  Receipt Date: 20181012
  Transmission Date: 20190204
  Serious: No
  Sender: FDA-Public Use
  Company Number: PHEH2018US039474

PATIENT
  Sex: Male
  Weight: 132.45 kg

DRUGS (1)
  1. COSENTYX [Suspect]
     Active Substance: SECUKINUMAB
     Indication: PSORIASIS
     Dosage: 300 MG, QMO
     Route: 058
     Dates: start: 20180426

REACTIONS (4)
  - Arthralgia [Recovered/Resolved]
  - Psoriasis [Unknown]
  - Incorrect product administration duration [Unknown]
  - Drug ineffective [Unknown]
